FAERS Safety Report 7693171-5 (Version None)
Quarter: 2011Q3

REPORT INFORMATION
  Report Type: 
  Country: None (occurrence: None)
  Receive Date: 20110819
  Receipt Date: 20110809
  Transmission Date: 20111222
  Serious: Yes (Hospitalization, Other)
  Sender: FDA-Public Use
  Company Number: US-BAYER-201034258NA

PATIENT
  Age: 37 Year
  Sex: Female

DRUGS (12)
  1. PRILOSEC [Concomitant]
  2. GEMFIBROZIL [Concomitant]
  3. XANAX [Concomitant]
  4. LEXAPRO [Concomitant]
  5. ZANTAC [Concomitant]
  6. SINGULAIR [Concomitant]
  7. DILAUDID [Concomitant]
  8. YAZ [Suspect]
     Indication: PREMENSTRUAL SYNDROME
     Dosage: UNK UNK, QD
     Route: 048
     Dates: start: 20070901, end: 20080901
  9. IMITREX [Concomitant]
  10. HYDROXYZINE [Concomitant]
  11. ZOLOFT [Concomitant]
  12. AMBIEN [Concomitant]

REACTIONS (7)
  - PANCREATITIS [None]
  - CHOLECYSTECTOMY [None]
  - CHOLELITHIASIS [None]
  - PULMONARY EMBOLISM [None]
  - CHOLECYSTITIS ACUTE [None]
  - ANXIETY [None]
  - PAIN [None]
